FAERS Safety Report 16728020 (Version 2)
Quarter: 2019Q4

REPORT INFORMATION
  Report Type: Spontaneous
  Country: FR (occurrence: FR)
  Receive Date: 20190822
  Receipt Date: 20191217
  Transmission Date: 20200122
  Serious: Yes (Hospitalization, Other)
  Sender: FDA-Public Use
  Company Number: FR-AUROBINDO-AUR-APL-2019-055020

PATIENT
  Age: 41 Year
  Sex: Female
  Weight: 52 kg

DRUGS (11)
  1. ZELITREX [Suspect]
     Active Substance: VALACYCLOVIR HYDROCHLORIDE
     Indication: INFECTION PROPHYLAXIS
     Dosage: 1 DOSAGE FORM, ONCE A DAY
     Route: 048
     Dates: start: 20190618
  2. DARZALEX [Suspect]
     Active Substance: DARATUMUMAB
     Indication: AMYLOIDOSIS
     Dosage: 1 DOSAGE FORM, EVERY WEEK
     Route: 042
     Dates: start: 20190717
  3. VELCADE [Suspect]
     Active Substance: BORTEZOMIB
     Indication: AMYLOIDOSIS
     Dosage: 1 UNK, EVERY WEEK
     Route: 065
     Dates: start: 201901, end: 201904
  4. CLAMOXYL [AMOXICILLIN TRIHYDRATE] [Suspect]
     Active Substance: AMOXICILLIN
     Indication: INFECTION PROPHYLAXIS
     Dosage: 2 DOSAGE FORM, ONCE A DAY
     Route: 048
     Dates: start: 20190618
  5. DEXAMETHASONE. [Suspect]
     Active Substance: DEXAMETHASONE
     Indication: AMYLOIDOSIS
     Dosage: 40 MILLIGRAM, EVERY WEEK
     Route: 065
     Dates: start: 20190618
  6. DARZALEX [Suspect]
     Active Substance: DARATUMUMAB
     Dosage: 1 UNK, EVERY WEEK
     Route: 065
     Dates: start: 201901, end: 201904
  7. BACTRIM [Suspect]
     Active Substance: SULFAMETHOXAZOLE\TRIMETHOPRIM
     Indication: INFECTION PROPHYLAXIS
     Dosage: UNK
     Route: 065
     Dates: start: 201901, end: 201904
  8. BACTRIM [Suspect]
     Active Substance: SULFAMETHOXAZOLE\TRIMETHOPRIM
     Indication: AMYLOIDOSIS
     Dosage: 3 DOSAGE FORM, EVERY WEEK
     Route: 048
     Dates: start: 20190618, end: 20190717
  9. RAMIPRIL. [Suspect]
     Active Substance: RAMIPRIL
     Indication: PROTEINURIA
     Dosage: 2.5 MICROGRAM, ONCE A DAY
     Dates: start: 20181017
  10. ENDOXAN [Suspect]
     Active Substance: CYCLOPHOSPHAMIDE
     Indication: AMYLOIDOSIS
     Dosage: 1500 MILLIGRAM, 5 WEEK, J1, J8, J15 TOUTES LES 5 SEMAINES
     Route: 048
     Dates: start: 20190618, end: 20190702
  11. VELCADE [Suspect]
     Active Substance: BORTEZOMIB
     Dosage: 1 DOSAGE FORM, EVERY WEEK
     Route: 058
     Dates: start: 20190618

REACTIONS (4)
  - Intentional product use issue [Unknown]
  - Acute myopia [Recovered/Resolved]
  - Pseudomyopia [Recovered/Resolved]
  - Off label use [Unknown]

NARRATIVE: CASE EVENT DATE: 20190717
